FAERS Safety Report 9300144 (Version 1)
Quarter: 2013Q2

REPORT INFORMATION
  Report Type: Report from Study
  Country: ES (occurrence: ES)
  Receive Date: 20130521
  Receipt Date: 20130521
  Transmission Date: 20140414
  Serious: Yes (Hospitalization, Other)
  Sender: FDA-Public Use
  Company Number: ES-JNJFOC-20130216730

PATIENT
  Age: 71 Year
  Sex: Male
  Weight: 77.3 kg

DRUGS (28)
  1. CANAGLIFLOZIN [Suspect]
     Indication: TYPE 2 DIABETES MELLITUS
     Route: 048
     Dates: start: 20130222, end: 20130325
  2. CANAGLIFLOZIN [Suspect]
     Indication: TYPE 2 DIABETES MELLITUS
     Route: 048
     Dates: start: 20100623, end: 20130219
  3. LANTUS [Concomitant]
     Indication: TYPE 2 DIABETES MELLITUS
     Dates: start: 20101005, end: 20110110
  4. LANTUS [Concomitant]
     Indication: TYPE 2 DIABETES MELLITUS
     Dates: start: 20100819, end: 20100908
  5. LANTUS [Concomitant]
     Indication: TYPE 2 DIABETES MELLITUS
     Dates: start: 20110111, end: 20110211
  6. LANTUS [Concomitant]
     Indication: TYPE 2 DIABETES MELLITUS
     Dates: start: 20110611
  7. LANTUS [Concomitant]
     Indication: TYPE 2 DIABETES MELLITUS
     Dates: start: 20110226, end: 20110610
  8. LANTUS [Concomitant]
     Indication: TYPE 2 DIABETES MELLITUS
     Dates: start: 20100909, end: 20101004
  9. LANTUS [Concomitant]
     Indication: TYPE 2 DIABETES MELLITUS
     Dates: start: 20110212, end: 20110225
  10. LANTUS [Concomitant]
     Indication: TYPE 2 DIABETES MELLITUS
     Dates: start: 200912, end: 20100818
  11. ADIRO [Concomitant]
     Indication: THROMBOSIS PROPHYLAXIS
     Route: 048
  12. CARDYL [Concomitant]
     Indication: DYSLIPIDAEMIA
     Route: 048
     Dates: start: 2002
  13. FERROGRADUMET [Concomitant]
     Indication: IRON DEFICIENCY ANAEMIA
     Route: 048
     Dates: start: 200511
  14. HEMOVAS [Concomitant]
     Indication: ARTERIAL DISORDER
     Route: 048
     Dates: start: 2002
  15. ISCOVER [Concomitant]
     Indication: CEREBROVASCULAR ACCIDENT
     Route: 048
     Dates: start: 200205
  16. DIAZEPAM [Concomitant]
     Indication: ADVERSE EVENT
     Route: 048
     Dates: start: 20120219
  17. DIAZEPAM [Concomitant]
     Indication: ADVERSE EVENT
     Route: 048
     Dates: start: 20090101
  18. DIAZEPAM [Concomitant]
     Indication: INSOMNIA
     Route: 048
     Dates: start: 20090101
  19. DIAZEPAM [Concomitant]
     Indication: INSOMNIA
     Route: 048
     Dates: start: 20120219
  20. SEGURIL [Concomitant]
     Indication: HYPERTENSION
     Route: 048
     Dates: start: 200306
  21. OXERUTINS [Concomitant]
     Indication: FATIGUE
     Route: 048
  22. OXERUTINS [Concomitant]
     Indication: VARICOSE VEIN
     Route: 048
  23. LORMETAZEPAM [Concomitant]
     Indication: INSOMNIA
     Route: 048
  24. CARDURAN NEO [Concomitant]
     Indication: HYPERTENSION
     Route: 048
     Dates: start: 200309, end: 20101129
  25. CARDURAN NEO [Concomitant]
     Indication: HYPERTENSION
     Route: 048
     Dates: start: 20111116, end: 20120112
  26. CARDURAN NEO [Concomitant]
     Indication: HYPERTENSION
     Route: 048
     Dates: start: 20120113
  27. OMEPRAZOLE [Concomitant]
     Indication: GASTROINTESTINAL DISORDER THERAPY
     Route: 048
     Dates: start: 2002, end: 20110404
  28. OMEPRAZOLE [Concomitant]
     Indication: GASTROINTESTINAL DISORDER THERAPY
     Route: 048
     Dates: start: 20120405

REACTIONS (1)
  - Metastatic carcinoma of the bladder [Not Recovered/Not Resolved]
